FAERS Safety Report 8910710 (Version 1)
Quarter: 2012Q4

REPORT INFORMATION
  Report Type: Spontaneous
  Country: GB (occurrence: None)
  Receive Date: 20121107
  Receipt Date: 20121107
  Transmission Date: 20130627
  Serious: Yes (Other)
  Sender: FDA-Public Use
  Company Number: 2012270345

PATIENT
  Age: 42 Year
  Sex: Male

DRUGS (1)
  1. FRAGMIN (DALTEPARIN SODIUM) SOLUTION FOR INJECTION [Suspect]

REACTIONS (7)
  - Incorrect drug administration duration [None]
  - Hip fracture [None]
  - Rash erythematous [None]
  - Pruritus [None]
  - Injection site pain [None]
  - Alopecia [None]
  - Thrombosis [None]
